FAERS Safety Report 6480301-6 (Version None)
Quarter: 2009Q4

REPORT INFORMATION
  Report Type: 
  Country: None (occurrence: None)
  Receive Date: 20091208
  Receipt Date: 20091125
  Transmission Date: 20100525
  Serious: Yes (Hospitalization)
  Sender: FDA-Public Use
  Company Number: US-ELI_LILLY_AND_COMPANY-US200911007158

PATIENT
  Sex: Female

DRUGS (8)
  1. CYMBALTA [Suspect]
     Indication: FIBROMYALGIA
     Dosage: 60 MG, DAILY (1/D)
     Dates: start: 20080101, end: 20091101
  2. PREMPRO [Concomitant]
     Dosage: 1 D/F, DAILY (1/D)
  3. SINGULAIR [Concomitant]
     Dosage: 10 MG, DAILY (1/D)
  4. ALBUTEROL [Concomitant]
     Dosage: UNK, AS NEEDED
     Route: 055
  5. EPIPEN [Concomitant]
     Dosage: UNK, AS NEEDED
  6. NEXIUM [Concomitant]
     Dosage: 40 MG, 2/D
  7. LYRICA [Concomitant]
     Dosage: 75 MG, 3/D
  8. DEMEROL [Concomitant]
     Dosage: 50 MG, 3/D

REACTIONS (10)
  - ANXIETY [None]
  - CRYING [None]
  - DIZZINESS [None]
  - DRUG WITHDRAWAL SYNDROME [None]
  - DYSARTHRIA [None]
  - FEELING ABNORMAL [None]
  - INTERVERTEBRAL DISC OPERATION [None]
  - MALAISE [None]
  - NERVE INJURY [None]
  - SURGERY [None]
